FAERS Safety Report 13061835 (Version 1)
Quarter: 2016Q4

REPORT INFORMATION
  Report Type: Spontaneous
  Country: US (occurrence: US)
  Receive Date: 20161226
  Receipt Date: 20161226
  Transmission Date: 20170207
  Serious: No
  Sender: FDA-Public Use
  Company Number: US-ASTRAZENECA-2016SF24185

PATIENT
  Sex: Female

DRUGS (2)
  1. SYMBICORT [Suspect]
     Active Substance: BUDESONIDE\FORMOTEROL FUMARATE DIHYDRATE
     Indication: PRODUCTIVE COUGH
     Dosage: 80/4.5MCG, TWICE A DAY
     Route: 055
  2. SYMBICORT [Suspect]
     Active Substance: BUDESONIDE\FORMOTEROL FUMARATE DIHYDRATE
     Indication: COUGH
     Dosage: 80/4.5MCG, TWICE A DAY
     Route: 055

REACTIONS (7)
  - Activities of daily living impaired [Unknown]
  - Intentional product misuse [Unknown]
  - Fatigue [Unknown]
  - Off label use [Unknown]
  - Intentional device misuse [Unknown]
  - Cough [Unknown]
  - Product used for unknown indication [Unknown]
